FAERS Safety Report 6503466-6 (Version None)
Quarter: 2009Q4

REPORT INFORMATION
  Report Type: 
  Country: None (occurrence: None)
  Receive Date: 20091217
  Receipt Date: 20091209
  Transmission Date: 20100525
  Serious: Yes (Other)
  Sender: FDA-Public Use
  Company Number: US-BAYER-200936449NA

PATIENT
  Age: 5 Year
  Sex: Female
  Weight: 23 kg

DRUGS (17)
  1. NEXAVAR [Suspect]
     Indication: RENAL CELL CARCINOMA
     Dosage: TOTAL DAILY DOSE: 200 MG  UNIT DOSE: 200 MG
     Route: 048
     Dates: start: 20091026
  2. NEXAVAR [Suspect]
     Dosage: TOTAL DAILY DOSE: 400 MG  UNIT DOSE: 200 MG
     Route: 048
     Dates: start: 20091006, end: 20091016
  3. LISINOPRIL [Concomitant]
     Dosage: TOTAL DAILY DOSE: 10 MG
     Route: 048
     Dates: start: 20091001
  4. LISINOPRIL [Concomitant]
     Dosage: TOTAL DAILY DOSE: 5.0 MG
  5. TRAZODONE HCL [Concomitant]
     Dosage: TOTAL DAILY DOSE: 25 MG
     Route: 048
     Dates: start: 20091001
  6. TRAZODONE HCL [Concomitant]
  7. HYDROXYZINE [Concomitant]
     Indication: PRURITUS
     Dosage: TOTAL DAILY DOSE: 10 MG
     Route: 048
     Dates: start: 20091001
  8. ONDANSETRON [Concomitant]
     Indication: NAUSEA
     Dosage: TOTAL DAILY DOSE: 4 MG
     Route: 048
     Dates: start: 20091001
  9. NORVASC [Concomitant]
     Dosage: TOTAL DAILY DOSE: 10 MG
  10. NORVASC [Concomitant]
     Dosage: TOTAL DAILY DOSE: 5 MG
  11. BACTRIM [Concomitant]
     Indication: INFECTION PROPHYLAXIS
     Dosage: M, T, W
  12. ISRADIPINE [Concomitant]
     Indication: BLOOD PRESSURE INCREASED
  13. NORMAL SALINE [Concomitant]
     Dosage: 95
     Route: 040
  14. BENADRYL [Concomitant]
  15. MULTI-VITAMIN [Concomitant]
  16. ZOFRAN [Concomitant]
  17. ATARAX [Concomitant]

REACTIONS (25)
  - ASTHENIA [None]
  - BLISTER [None]
  - BLOOD PRESSURE INCREASED [None]
  - BODY TEMPERATURE INCREASED [None]
  - CATHETER SITE PAIN [None]
  - CHAPPED LIPS [None]
  - CHILLS [None]
  - DIARRHOEA [None]
  - DRY SKIN [None]
  - EAR PAIN [None]
  - ERYTHEMA [None]
  - FATIGUE [None]
  - FEELING COLD [None]
  - GLOSSODYNIA [None]
  - HYPERAESTHESIA [None]
  - IRRITABILITY [None]
  - NAUSEA [None]
  - OEDEMA MOUTH [None]
  - OEDEMA PERIPHERAL [None]
  - PAIN IN EXTREMITY [None]
  - PRURITUS [None]
  - RASH MACULAR [None]
  - SKIN EXFOLIATION [None]
  - SWELLING FACE [None]
  - TONGUE GEOGRAPHIC [None]
